FAERS Safety Report 6656895-4 (Version None)
Quarter: 2010Q1

REPORT INFORMATION
  Report Type: 
  Country: None (occurrence: None)
  Receive Date: 20100329
  Receipt Date: 20100329
  Transmission Date: 20100710
  Serious: Yes (Hospitalization)
  Sender: FDA-Public Use
  Company Number: None

PATIENT
  Age: 76 Year
  Sex: Male
  Weight: 88.9 kg

DRUGS (1)
  1. AMIODARONE HCL [Suspect]
     Indication: ATRIAL FIBRILLATION
     Dosage: 200 MG OTHER PO
     Route: 048
     Dates: start: 20090821, end: 20100227

REACTIONS (3)
  - CARDIAC FAILURE [None]
  - PANCREATITIS [None]
  - PNEUMONIA [None]
